FAERS Safety Report 4768928-0 (Version None)
Quarter: 2005Q3

REPORT INFORMATION
  Report Type: 
  Country: None (occurrence: None)
  Receive Date: 20050914
  Receipt Date: 20050829
  Transmission Date: 20060218
  Serious: Yes (Other)
  Sender: FDA-Public Use
  Company Number: 060001M05AUS

PATIENT
  Sex: Female

DRUGS (2)
  1. SEROPHENE [Suspect]
     Indication: OVULATION INDUCTION
     Dosage: 50 MG, 1 IN 1 DAYS
     Dates: end: 20050818
  2. FOLIC ACID [Concomitant]

REACTIONS (6)
  - CONVULSION [None]
  - DIZZINESS [None]
  - LOSS OF CONSCIOUSNESS [None]
  - PHOTOPSIA [None]
  - STARING [None]
  - VISUAL DISTURBANCE [None]
